FAERS Safety Report 17431592 (Version 2)
Quarter: 2020Q1

REPORT INFORMATION
  Report Type: Spontaneous
  Country: US (occurrence: US)
  Receive Date: 20200218
  Receipt Date: 20200219
  Transmission Date: 20200409
  Serious: Yes (Other)
  Sender: FDA-Public Use
  Company Number: US-AKORN PHARMACEUTICALS-2019AKN02466

PATIENT
  Age: 23 Year
  Sex: Female
  Weight: 47.17 kg

DRUGS (5)
  1. CLARAVIS [Suspect]
     Active Substance: ISOTRETINOIN
     Dosage: 30 MG, 1X/DAY
     Route: 048
     Dates: start: 20191028, end: 20191215
  2. MYORISAN [Suspect]
     Active Substance: ISOTRETINOIN
     Indication: ACNE
     Dosage: 30 MG, 1X/DAY
     Route: 048
     Dates: start: 20191129, end: 20191215
  3. MYORISAN [Suspect]
     Active Substance: ISOTRETINOIN
     Dosage: 30 MG, 1X/DAY
     Route: 048
     Dates: start: 20200113, end: 20200116
  4. MYORISAN [Suspect]
     Active Substance: ISOTRETINOIN
     Indication: ACNE
     Dosage: 50 MG, 1X/DAY
     Route: 048
     Dates: start: 20191230, end: 20200112
  5. MYORISAN [Suspect]
     Active Substance: ISOTRETINOIN
     Dosage: 50 MG, 1X/DAY
     Route: 048
     Dates: start: 20191216, end: 20200112

REACTIONS (6)
  - Emotional distress [Recovered/Resolved]
  - Arthralgia [Recovered/Resolved]
  - Unevaluable event [Recovered/Resolved]
  - Headache [Recovered/Resolved]
  - Nasopharyngitis [Recovered/Resolved]
  - Stress [Recovered/Resolved]

NARRATIVE: CASE EVENT DATE: 2019
